FAERS Safety Report 16974217 (Version 2)
Quarter: 2019Q4

REPORT INFORMATION
  Report Type: Spontaneous
  Country: FR (occurrence: FR)
  Receive Date: 20191030
  Receipt Date: 20191217
  Transmission Date: 20200122
  Serious: Yes (Other)
  Sender: FDA-Public Use
  Company Number: FR-PFIZER INC-2019464041

PATIENT
  Age: 22 Year
  Sex: Male
  Weight: 64 kg

DRUGS (9)
  1. TRAMADOL. [Concomitant]
     Active Substance: TRAMADOL
     Dosage: UNK
  2. NEFOPAM HCL [Concomitant]
     Active Substance: NEFOPAM
     Dosage: UNK
  3. PREGABALIN. [Suspect]
     Active Substance: PREGABALIN
     Indication: NEURALGIA
     Dosage: 450 MG, 1X/DAY
     Route: 048
     Dates: start: 20190504, end: 20190910
  4. SERESTA [Concomitant]
     Active Substance: OXAZEPAM
     Dosage: UNK
  5. POLARAMINE [Concomitant]
     Active Substance: DEXCHLORPHENIRAMINE MALEATE
     Dosage: UNK
  6. DAFALGAN [Concomitant]
     Active Substance: ACETAMINOPHEN
     Dosage: UNK
  7. VERSATIS [Concomitant]
     Active Substance: LIDOCAINE
     Dosage: UNK
  8. OXYNORM [Concomitant]
     Active Substance: OXYCODONE HYDROCHLORIDE
     Dosage: UNK
  9. URBANYL [Concomitant]
     Active Substance: CLOBAZAM
     Dosage: UNK

REACTIONS (1)
  - Neutropenia [Recovering/Resolving]

NARRATIVE: CASE EVENT DATE: 20190910
